FAERS Safety Report 14049009 (Version 1)
Quarter: 2017Q4

REPORT INFORMATION
  Report Type: Report from Study
  Country: CN (occurrence: CN)
  Receive Date: 20171005
  Receipt Date: 20171005
  Transmission Date: 20180321
  Serious: Yes (Death)
  Sender: FDA-Public Use
  Company Number: CN-MYLANLABS-2017M1061866

PATIENT
  Age: 2 Year
  Sex: Female

DRUGS (1)
  1. TRETINOIN. [Suspect]
     Active Substance: TRETINOIN
     Indication: ACUTE PROMYELOCYTIC LEUKAEMIA
     Route: 065

REACTIONS (1)
  - Acute promyelocytic leukaemia differentiation syndrome [Fatal]
